FAERS Safety Report 5811868-6 (Version None)
Quarter: 2008Q3

REPORT INFORMATION
  Report Type: 
  Country: None (occurrence: None)
  Receive Date: 20080716
  Receipt Date: 20080715
  Transmission Date: 20090109
  Serious: Yes (Life-Threatening)
  Sender: FDA-Public Use
  Company Number: FR-WYE-G01867008

PATIENT
  Sex: Female

DRUGS (1)
  1. ADVIL [Suspect]
     Indication: HEADACHE
     Dosage: UNKNOWN
     Route: 048
     Dates: start: 20080101, end: 20080624

REACTIONS (4)
  - APLASIA PURE RED CELL [None]
  - ASTHENIA [None]
  - DIZZINESS [None]
  - DYSPNOEA [None]
